FAERS Safety Report 15754679 (Version 1)
Quarter: 2018Q4

REPORT INFORMATION
  Report Type: Other
  Country: US (occurrence: US)
  Receive Date: 20181224
  Receipt Date: 20181224
  Transmission Date: 20190205
  Serious: No
  Sender: FDA-Public Use
  Company Number: US-LAURUS LABS LIMITED-201800277

PATIENT
  Age: 14 Year
  Sex: Female
  Weight: 92 kg

DRUGS (4)
  1. METFORMIN [Suspect]
     Active Substance: METFORMIN HYDROCHLORIDE
     Indication: HYPERANDROGENISM
     Dosage: DAILY, DOSE WAS INCREASED WEEKLY BY 500 MG/D UNTIL ACHIEVING THE TARGET DOSE OF 1000 MG TWICE DAILY
     Route: 065
  2. ESTRADIOL. [Concomitant]
     Active Substance: ESTRADIOL
     Indication: HYPERANDROGENISM
     Dosage: ORAL MICRONIZED E2, ONCE DAILY
     Route: 048
  3. PROGESTERONE. [Concomitant]
     Active Substance: PROGESTERONE
     Indication: HYPERANDROGENISM
     Dosage: THRICE DAILY (7:00 AM, 3:00 PM, AND 11:00 PM)
     Route: 048
  4. METFORMIN [Suspect]
     Active Substance: METFORMIN HYDROCHLORIDE
     Indication: HYPERANDROGENISM
     Dosage: TWICE DAILY FOR 9.4 TO 13.7 WEEKS
     Route: 065

REACTIONS (1)
  - Off label use [Unknown]
